FAERS Safety Report 14240308 (Version 1)
Quarter: 2017Q4

REPORT INFORMATION
  Report Type: Spontaneous
  Country: US (occurrence: US)
  Receive Date: 20171130
  Receipt Date: 20171130
  Transmission Date: 20180321
  Serious: No
  Sender: FDA-Public Use
  Company Number: US-ALEXION PHARMACEUTICALS INC.-A201712626

PATIENT
  Age: 45 Year
  Sex: Female

DRUGS (3)
  1. SOLIRIS [Suspect]
     Active Substance: ECULIZUMAB
     Indication: OFF LABEL USE
  2. TREPROSTINIL [Concomitant]
     Active Substance: TREPROSTINIL
     Indication: MALIGNANT ATROPHIC PAPULOSIS
     Route: 065
  3. SOLIRIS [Suspect]
     Active Substance: ECULIZUMAB
     Indication: MALIGNANT ATROPHIC PAPULOSIS
     Route: 065

REACTIONS (1)
  - Off label use [Not Recovered/Not Resolved]
